FAERS Safety Report 20038258 (Version 1)
Quarter: 2021Q4

REPORT INFORMATION
  Report Type: Spontaneous
  Country: US (occurrence: US)
  Receive Date: 20211105
  Receipt Date: 20211105
  Transmission Date: 20220303
  Serious: No
  Sender: FDA-Public Use
  Company Number: US-ALKERMES INC.-ALK-2021-005607

PATIENT
  Sex: Male

DRUGS (6)
  1. VIVITROL [Suspect]
     Active Substance: NALTREXONE
     Indication: Drug dependence
     Dosage: 380 MILLIGRAM, QMO
     Route: 030
  2. VIVITROL [Suspect]
     Active Substance: NALTREXONE
     Indication: Alcoholism
  3. VIVITROL [Suspect]
     Active Substance: NALTREXONE
     Indication: Toxicity to various agents
  4. VIVITROL [Suspect]
     Active Substance: NALTREXONE
     Indication: Anxiolytic therapy
  5. VIVITROL [Suspect]
     Active Substance: NALTREXONE
     Indication: Drug dependence
  6. VIVITROL [Suspect]
     Active Substance: NALTREXONE
     Indication: Drug dependence

REACTIONS (3)
  - Off label use [Not Recovered/Not Resolved]
  - Dental operation [Recovered/Resolved]
  - Procedural pain [Not Recovered/Not Resolved]
